FAERS Safety Report 22621141 (Version 1)
Quarter: 2023Q2

REPORT INFORMATION
  Report Type: Spontaneous
  Country: US (occurrence: None)
  Receive Date: 20230616
  Receipt Date: 20230616
  Transmission Date: 20230722
  Serious: No
  Sender: FDA-Public Use
  Company Number: None

PATIENT

DRUGS (2)
  1. DEVICE [Suspect]
     Active Substance: DEVICE
  2. TREPROSTINIL [Suspect]
     Active Substance: TREPROSTINIL
     Indication: Pulmonary arterial hypertension
     Dosage: OTHER QUANTITY : 21 NG/KG/MIN;?OTHER FREQUENCY : CONTINOUS;?
     Route: 042
     Dates: start: 202211

REACTIONS (7)
  - White blood cell count decreased [None]
  - Fluid retention [None]
  - Weight increased [None]
  - Anaemia [None]
  - Soft tissue mass [None]
  - Device issue [None]
  - Device delivery system issue [None]
